FAERS Safety Report 8476973 (Version 4)
Quarter: 2013Q4

REPORT INFORMATION
  Report Type: Report from Study
  Country: CA (occurrence: CA)
  Receive Date: 20120326
  Receipt Date: 20131103
  Transmission Date: 20140711
  Serious: Yes (Other)
  Sender: FDA-Public Use
  Company Number: PHHY2012CA025132

PATIENT
  Sex: Female

DRUGS (6)
  1. ACLASTA [Suspect]
     Indication: OSTEOPOROSIS
     Dosage: UNK UKN, UNK
     Route: 042
     Dates: start: 20100325
  2. ACLASTA [Suspect]
     Dosage: UNK UKN, UNK
     Route: 042
     Dates: start: 20110325
  3. ACLASTA [Suspect]
     Dosage: UNK UKN, UNK
     Route: 042
     Dates: start: 20120608
  4. CALCIUM [Concomitant]
  5. VITAMIN D3 [Concomitant]
  6. ANGIOTENSIN II ANTAGONISTS [Concomitant]

REACTIONS (4)
  - Haematochezia [Unknown]
  - Creatinine renal clearance decreased [Unknown]
  - Dental caries [Unknown]
  - Tooth discolouration [Unknown]
